FAERS Safety Report 13568992 (Version 1)
Quarter: 2017Q2

REPORT INFORMATION
  Report Type: Spontaneous
  Country: CH (occurrence: CH)
  Receive Date: 20170522
  Receipt Date: 20170522
  Transmission Date: 20170830
  Serious: Yes (Death, Other)
  Sender: FDA-Public Use
  Company Number: CH-TEVA-768474ISR

PATIENT
  Age: 93 Year
  Sex: Female
  Weight: 50 kg

DRUGS (5)
  1. METOPROLOL MEPHA ZOK [Suspect]
     Active Substance: METOPROLOL SUCCINATE
     Dosage: 25 MILLIGRAM DAILY;
  2. XEFO [Suspect]
     Active Substance: LORNOXICAM
     Dosage: 8 MILLIGRAM DAILY;
     Route: 048
  3. VI-DE 3 [Concomitant]
     Active Substance: CHOLECALCIFEROL
     Dosage: 10 GTT DAILY;
     Route: 048
  4. AMLO (AMLODIPINE MALEATE) [Suspect]
     Active Substance: AMLODIPINE MALEATE
     Dosage: 5 MILLIGRAM DAILY;
     Route: 048
  5. TIMOPTIC [Concomitant]
     Active Substance: TIMOLOL MALEATE
     Dosage: .25 PERCENT DAILY;

REACTIONS (3)
  - Haematochezia [Recovered/Resolved]
  - Gastrointestinal haemorrhage [Fatal]
  - Haematemesis [Recovered/Resolved]

NARRATIVE: CASE EVENT DATE: 20170407
